FAERS Safety Report 5148148-0 (Version None)
Quarter: 2006Q4

REPORT INFORMATION
  Report Type: 
  Country: None (occurrence: None)
  Receive Date: 20061110
  Receipt Date: 20061030
  Transmission Date: 20070319
  Serious: Yes (Hospitalization)
  Sender: FDA-Public Use
  Company Number: 2006CG01764

PATIENT
  Age: 78 Year
  Sex: Female

DRUGS (8)
  1. ZESTRIL [Suspect]
     Route: 048
     Dates: end: 20060710
  2. HEMIGOXINE [Suspect]
     Route: 048
     Dates: end: 20060710
  3. COUMADIN [Suspect]
     Route: 048
     Dates: end: 20060710
  4. GLUCOPHAGE [Suspect]
     Route: 048
     Dates: end: 20060710
  5. OMEPRAZOLE [Concomitant]
     Route: 048
  6. AMLOR [Concomitant]
  7. LEVOTHYROXINE SODIUM [Concomitant]
  8. LASIX [Concomitant]
     Dates: end: 20060710

REACTIONS (4)
  - FALL [None]
  - INTERNATIONAL NORMALISED RATIO INCREASED [None]
  - OVERDOSE [None]
  - RENAL FAILURE ACUTE [None]
